FAERS Safety Report 7418032-8 (Version None)
Quarter: 2011Q2

REPORT INFORMATION
  Report Type: 
  Country: None (occurrence: None)
  Receive Date: 20110415
  Receipt Date: 20110404
  Transmission Date: 20111010
  Serious: Yes (Hospitalization)
  Sender: FDA-Public Use
  Company Number: FR-ROCHE-769966

PATIENT
  Sex: Male

DRUGS (27)
  1. CIFLOX [Suspect]
     Route: 042
     Dates: start: 20101202, end: 20101207
  2. TIENAM [Suspect]
     Route: 042
     Dates: start: 20101202, end: 20101208
  3. GENTAMICINE [Suspect]
     Route: 048
     Dates: start: 20101126, end: 20101216
  4. NOXAFIL [Suspect]
     Route: 042
     Dates: start: 20101202, end: 20101206
  5. DECTANCYL [Suspect]
     Route: 048
     Dates: start: 20101126, end: 20101129
  6. NICOPATCH [Concomitant]
  7. VESANOID [Suspect]
     Route: 048
     Dates: start: 20101126, end: 20101215
  8. VANCOMYCINE [Suspect]
     Route: 042
     Dates: start: 20101202, end: 20101207
  9. TARGOCID [Suspect]
     Route: 042
     Dates: start: 20101207, end: 20101227
  10. ARACYTINE [Suspect]
     Route: 042
     Dates: start: 20101126, end: 20101202
  11. VFEND [Suspect]
     Indication: ASPERGILLOSIS
     Route: 042
     Dates: start: 20101206, end: 20101218
  12. EMEND [Suspect]
     Route: 048
     Dates: start: 20101126, end: 20101206
  13. SOLIAN [Concomitant]
  14. SYMBICORT [Suspect]
     Route: 055
     Dates: start: 20101202
  15. SPIRIVA [Suspect]
     Route: 055
  16. IMODIUM [Concomitant]
  17. FASTURTEC [Concomitant]
     Route: 042
     Dates: start: 20101126, end: 20101127
  18. CLAVENTIN [Suspect]
     Dosage: DOSE: 5G/200MG
     Route: 042
     Dates: start: 20101207, end: 20101227
  19. NICORETTE [Suspect]
     Dosage: DOSE: 10 MG
     Route: 055
     Dates: start: 20101127, end: 20101207
  20. ZOPHREN [Concomitant]
     Dates: start: 20101126, end: 20101206
  21. MOPRAL [Concomitant]
  22. SERESTA [Concomitant]
  23. ZOVIRAX [Suspect]
     Route: 042
     Dates: start: 20101202, end: 20101210
  24. ZAVEDOS [Suspect]
     Route: 042
     Dates: start: 20101126, end: 20101130
  25. TAZOCILLINE [Suspect]
     Dosage: STRENGTH: 5G/400MG
     Route: 042
     Dates: start: 20101126, end: 20101201
  26. EFFEXOR [Concomitant]
  27. MORPHINE [Concomitant]

REACTIONS (2)
  - NECROTISING ULCERATIVE GINGIVOSTOMATITIS [None]
  - DISEASE PROGRESSION [None]
